FAERS Safety Report 5594136-X (Version None)
Quarter: 2008Q1

REPORT INFORMATION
  Report Type: 
  Country: None (occurrence: None)
  Receive Date: 20080115
  Receipt Date: 20080108
  Transmission Date: 20080703
  Serious: Yes (Hospitalization, Other)
  Sender: FDA-Public Use
  Company Number: 2007SP021567

PATIENT
  Age: 55 Year
  Sex: Male
  Weight: 111.1313 kg

DRUGS (6)
  1. INTRON A [Suspect]
     Indication: HEPATITIS C
     Dates: start: 20000101, end: 20000101
  2. RIBAVIRIN [Suspect]
     Indication: HEPATITIS C
     Dosage: PO
     Route: 048
     Dates: start: 20000101, end: 20000101
  3. GLUCOPHAGE [Concomitant]
  4. VASOTEC [Concomitant]
  5. NORVASC [Concomitant]
  6. TOPROL-XL [Concomitant]

REACTIONS (16)
  - ANXIETY [None]
  - ASTHENIA [None]
  - BLOOD PRESSURE INCREASED [None]
  - CHEST PAIN [None]
  - CORONARY ARTERY DISEASE [None]
  - CORONARY ARTERY OCCLUSION [None]
  - COUGH [None]
  - DEPRESSION [None]
  - DIABETES MELLITUS [None]
  - FATIGUE [None]
  - FEELING COLD [None]
  - FEELING JITTERY [None]
  - PALLOR [None]
  - PALPITATIONS [None]
  - THROAT IRRITATION [None]
  - VOMITING [None]
